FAERS Safety Report 21084109 (Version 1)
Quarter: 2022Q3

REPORT INFORMATION
  Report Type: Spontaneous
  Country: DE (occurrence: DE)
  Receive Date: 20220714
  Receipt Date: 20220714
  Transmission Date: 20221027
  Serious: No
  Sender: FDA-Public Use
  Company Number: DE-JAZZ-2022-DE-021171

PATIENT
  Age: 27 Year

DRUGS (1)
  1. CANNABIDIOL [Suspect]
     Active Substance: CANNABIDIOL
     Indication: Tuberous sclerosis complex

REACTIONS (1)
  - Fatigue [Unknown]
